FAERS Safety Report 6200334-4 (Version None)
Quarter: 2009Q2

REPORT INFORMATION
  Report Type: 
  Country: None (occurrence: None)
  Receive Date: 20090522
  Receipt Date: 20090515
  Transmission Date: 20091009
  Serious: Yes (Other)
  Sender: FDA-Public Use
  Company Number: PHHY2008JP23754

PATIENT
  Age: 50 Year
  Sex: Female

DRUGS (1)
  1. LAMISIL [Suspect]
     Dosage: 125 MG PER DAY
     Route: 048
     Dates: start: 20080529, end: 20080929

REACTIONS (2)
  - ARRHYTHMIA [None]
  - PALPITATIONS [None]
